FAERS Safety Report 6997506-8 (Version None)
Quarter: 2010Q3

REPORT INFORMATION
  Report Type: 
  Country: None (occurrence: None)
  Receive Date: 20100918
  Receipt Date: 20091019
  Transmission Date: 20110219
  Serious: No
  Sender: FDA-Public Use
  Company Number: US-WYE-H11743409

PATIENT
  Sex: Female
  Weight: 81.72 kg

DRUGS (7)
  1. PRISTIQ [Suspect]
     Indication: DEPRESSION
     Route: 048
     Dates: start: 20080101, end: 20090101
  2. PRISTIQ [Suspect]
     Route: 048
     Dates: start: 20090101
  3. ZOCOR [Concomitant]
  4. XANAX [Concomitant]
  5. OMACOR [Concomitant]
  6. SYNTHROID [Concomitant]
  7. MICARDIS [Concomitant]

REACTIONS (9)
  - AGITATION [None]
  - BLOOD CHOLESTEROL INCREASED [None]
  - BLOOD PRESSURE INCREASED [None]
  - BLOOD TRIGLYCERIDES INCREASED [None]
  - DRUG INEFFECTIVE [None]
  - HEART RATE INCREASED [None]
  - HOSTILITY [None]
  - MOOD SWINGS [None]
  - THYROID DISORDER [None]
